FAERS Safety Report 20705927 (Version 2)
Quarter: 2022Q2

REPORT INFORMATION
  Report Type: Spontaneous
  Country: IN (occurrence: IN)
  Receive Date: 20220413
  Receipt Date: 20220415
  Transmission Date: 20220720
  Serious: Yes (Hospitalization, Other)
  Sender: FDA-Public Use
  Company Number: IN-PFIZER INC-2020268680

PATIENT
  Age: 53 Year
  Sex: Female

DRUGS (47)
  1. INLYTA [Suspect]
     Active Substance: AXITINIB
     Indication: Metastatic renal cell carcinoma
     Dosage: 5 MG
     Route: 048
     Dates: start: 20181006
  2. INLYTA [Suspect]
     Active Substance: AXITINIB
     Dosage: 5 MG, 2X/DAY
     Route: 048
     Dates: start: 2018
  3. AMLODIPINE [Concomitant]
     Active Substance: AMLODIPINE BESYLATE
  4. CEFUROXIME [Concomitant]
     Active Substance: CEFUROXIME
     Dosage: 1, 1-0-1 [07:00,19:00]
     Dates: start: 20200604, end: 20200606
  5. SODIUM PHOSPHATE, DIBASIC [Concomitant]
     Active Substance: SODIUM PHOSPHATE, DIBASIC
  6. SODIUM PHOSPHATE, MONOBASIC [Concomitant]
     Active Substance: SODIUM PHOSPHATE, MONOBASIC
  7. DEXAMETHASONE [Concomitant]
     Active Substance: DEXAMETHASONE
     Dosage: 1, 1-0-0(LATE MORNING)[10:00]
     Route: 048
     Dates: start: 20200609, end: 20200611
  8. DEXAMETHASONE [Concomitant]
     Active Substance: DEXAMETHASONE
     Dosage: 2 MG, 1X/DAY, 1-0-0(LATE MORNING)[10:00]
     Route: 048
     Dates: start: 20200610, end: 20200611
  9. DEXAMETHASONE [Concomitant]
     Active Substance: DEXAMETHASONE
     Dosage: 1,1-0-1(EARLY) [08:00,20:00]
     Route: 042
     Dates: start: 20200604, end: 20200606
  10. DEXAMETHASONE [Concomitant]
     Active Substance: DEXAMETHASONE
     Dosage: 1, 1-0-1 [09:00,21:00]
     Route: 042
     Dates: start: 20200604, end: 20200606
  11. LACTULOSE [Concomitant]
     Active Substance: LACTULOSE
     Dosage: 15 ML, DAILY
     Route: 048
     Dates: start: 20200609
  12. PANTOPRAZOLE [Concomitant]
     Active Substance: PANTOPRAZOLE
     Dosage: 1, 1-0-0(EARLY MORNING )[08:00]
     Route: 048
     Dates: start: 20200607, end: 20200610
  13. PANTOPRAZOLE [Concomitant]
     Active Substance: PANTOPRAZOLE
     Dosage: 1, 1-0-0(EARLY MORNING )[08:00]
     Route: 048
     Dates: start: 20200609, end: 20200613
  14. PANTOPRAZOLE [Concomitant]
     Active Substance: PANTOPRAZOLE
     Dosage: 1, 1-0-0(EARLY MORNING )[08:00]
     Route: 048
     Dates: start: 20200610, end: 20200612
  15. DIPHENHYDRAMINE [Concomitant]
     Active Substance: DIPHENHYDRAMINE
     Dosage: 1, 1-1-1(EARLY) [08:00,14:00,20:00]
     Route: 048
     Dates: start: 20200603, end: 20200605
  16. PANTOPRAZOLE [Concomitant]
     Active Substance: PANTOPRAZOLE
     Dosage: 1, 1-0-0(LATE MORNING)[10:00]
     Route: 042
     Dates: start: 20200604, end: 20200606
  17. CEFUROXIME [Concomitant]
     Active Substance: CEFUROXIME
  18. ACETAMINOPHEN [Concomitant]
     Active Substance: ACETAMINOPHEN
     Dosage: UNK
     Route: 042
     Dates: start: 20200604, end: 20200604
  19. ACETAMINOPHEN [Concomitant]
     Active Substance: ACETAMINOPHEN
     Dosage: 1, EVERY 6 HRS[2,8,14,20]
     Route: 042
     Dates: start: 20200604, end: 20200606
  20. ATORVASTATIN [Concomitant]
     Active Substance: ATORVASTATIN
     Dosage: 1, 1X/DAY
     Route: 048
     Dates: start: 20200606
  21. ATORVASTATIN [Concomitant]
     Active Substance: ATORVASTATIN
     Dosage: 1, 0-0-1(LATE NIGHT)[22:00]
     Route: 048
     Dates: start: 20200608, end: 20200618
  22. ATORVASTATIN [Concomitant]
     Active Substance: ATORVASTATIN
     Dosage: 1, 0-0-1(LATE NIGHT)[22:00]
     Route: 048
     Dates: start: 20200610, end: 20200612
  23. BETAHISTINE HCL [Concomitant]
     Dosage: 1, 1-1-1[08:00,16:00,23:59]
     Route: 048
     Dates: start: 20200609, end: 20200612
  24. BETAHISTINE HCL [Concomitant]
     Dosage: 1, 1-1-1[08:00,16:00,23:59]
     Route: 048
     Dates: start: 20200610, end: 20200611
  25. CALCIUM GLUCONATE [Concomitant]
     Active Substance: CALCIUM GLUCONATE
  26. EPHEDRINE [Concomitant]
     Active Substance: EPHEDRINE
  27. ROCURONIUM [Concomitant]
     Active Substance: ROCURONIUM BROMIDE
  28. FUSIDIC ACID [Concomitant]
     Active Substance: FUSIDIC ACID
  29. SODIUM CHLORIDE [Concomitant]
     Active Substance: SODIUM CHLORIDE
     Dosage: UNK
     Route: 042
     Dates: start: 20200604, end: 20200604
  30. SODIUM CHLORIDE [Concomitant]
     Active Substance: SODIUM CHLORIDE
     Dosage: UNK
     Route: 042
     Dates: start: 20200604, end: 20200605
  31. FUROSEMIDE [Concomitant]
     Active Substance: FUROSEMIDE
  32. LIDOCAINE HYDROCHLORIDE [Concomitant]
     Active Substance: LIDOCAINE HYDROCHLORIDE
  33. NEOSTIGMINE METHYLSULFATE [Concomitant]
     Active Substance: NEOSTIGMINE METHYLSULFATE
  34. NOREPINEPHRINE [Concomitant]
     Active Substance: NOREPINEPHRINE
  35. PROPOFOL [Concomitant]
     Active Substance: PROPOFOL
  36. CALCIUM CHLORIDE [Concomitant]
     Active Substance: CALCIUM CHLORIDE
     Dosage: UNK
     Route: 042
     Dates: start: 20200604, end: 20200604
  37. CALCIUM CHLORIDE [Concomitant]
     Active Substance: CALCIUM CHLORIDE
     Dosage: UNK
     Route: 042
     Dates: start: 20200604, end: 20200605
  38. POTASSIUM CHLORIDE [Concomitant]
     Active Substance: POTASSIUM CHLORIDE
     Dosage: UNK
     Route: 042
     Dates: start: 20200604, end: 20200604
  39. POTASSIUM CHLORIDE [Concomitant]
     Active Substance: POTASSIUM CHLORIDE
     Dosage: UNK
     Route: 042
     Dates: start: 20200604, end: 20200605
  40. SODIUM LACTATE [Concomitant]
     Active Substance: SODIUM LACTATE
  41. GLYCOPYRROLATE [Concomitant]
     Active Substance: GLYCOPYRROLATE
  42. SEVOFLURANE [Concomitant]
     Active Substance: SEVOFLURANE
  43. SODIUM BICARBONATE [Concomitant]
     Active Substance: SODIUM BICARBONATE
  44. TOBRAMYCIN [Concomitant]
     Active Substance: TOBRAMYCIN
  45. REMIFENTANIL [Concomitant]
     Active Substance: REMIFENTANIL
  46. AMLODIPINE [Concomitant]
     Active Substance: AMLODIPINE BESYLATE
     Dosage: 1, DAILY
     Route: 048
     Dates: start: 20200606
  47. AMLODIPINE [Concomitant]
     Active Substance: AMLODIPINE BESYLATE
     Dosage: 1, 1-0-0(LATE MORNING)[10:00]
     Route: 048
     Dates: start: 20200610, end: 20200612

REACTIONS (34)
  - Hydrocephalus [Recovering/Resolving]
  - Cerebellar haemorrhage [Unknown]
  - Brain oedema [Unknown]
  - Pericardial effusion [Unknown]
  - CSF protein increased [Unknown]
  - CSF glucose increased [Unknown]
  - Neoplasm progression [Unknown]
  - Thyroiditis [Unknown]
  - Dilatation ventricular [Unknown]
  - Headache [Unknown]
  - Ataxia [Unknown]
  - Dysarthria [Unknown]
  - Anisocytosis [Unknown]
  - Lymphopenia [Unknown]
  - Erythropenia [Unknown]
  - Normochromic normocytic anaemia [Unknown]
  - Anaemia of chronic disease [Unknown]
  - Monocyte percentage increased [Unknown]
  - Haemoglobin decreased [Unknown]
  - Mean cell haemoglobin decreased [Unknown]
  - Mean cell haemoglobin concentration decreased [Unknown]
  - White blood cell count increased [Unknown]
  - Neutrophil percentage increased [Unknown]
  - Lymphocyte percentage decreased [Unknown]
  - Neutrophil count increased [Unknown]
  - Blood phosphorus increased [Unknown]
  - Lymphocyte count decreased [Unknown]
  - Red blood cell count abnormal [Unknown]
  - Haematocrit decreased [Unknown]
  - Red cell distribution width increased [Unknown]
  - Blood urea increased [Unknown]
  - Blood creatinine increased [Unknown]
  - Blood chloride increased [Unknown]
  - Blood potassium increased [Unknown]

NARRATIVE: CASE EVENT DATE: 20200602
